FAERS Safety Report 10217123 (Version 1)
Quarter: 2014Q2

REPORT INFORMATION
  Report Type: Spontaneous
  Country: CA (occurrence: CA)
  Receive Date: 20140604
  Receipt Date: 20140604
  Transmission Date: 20141212
  Serious: Yes (Other)
  Sender: FDA-Public Use
  Company Number: PHHY2014CA065676

PATIENT
  Sex: Female

DRUGS (8)
  1. AMLODIPINE SANDOZ [Suspect]
  2. TEVA-CLONAZEPAM [Concomitant]
  3. VESICARE [Concomitant]
  4. TEVA-PANTOPRAZOLE [Concomitant]
  5. RATIO ATORVASTATIN [Concomitant]
  6. APO-QUINAPRIL [Concomitant]
  7. ASPIRIN [Concomitant]
  8. PROLIA [Concomitant]

REACTIONS (7)
  - Breast discharge [Unknown]
  - Oesophagitis [Unknown]
  - Dyspepsia [Unknown]
  - Breast pain [Unknown]
  - Back pain [Unknown]
  - Erythema [Unknown]
  - Pain of skin [Unknown]
